FAERS Safety Report 22293864 (Version 1)
Quarter: 2023Q2

REPORT INFORMATION
  Report Type: Spontaneous
  Country: CN (occurrence: None)
  Receive Date: 20230508
  Receipt Date: 20230508
  Transmission Date: 20230722
  Serious: Yes (Other)
  Sender: FDA-Public Use
  Company Number: CN-ROCHE-3344249

PATIENT
  Age: 74 Year
  Sex: Male
  Weight: 61 kg

DRUGS (5)
  1. ATEZOLIZUMAB [Suspect]
     Active Substance: ATEZOLIZUMAB
     Indication: Small cell lung cancer metastatic
     Dosage: 20/JUL/2022, 16/AUG/2022, 16/SEP/2022, 14/OCT/2022, 18/NOV/2022, 15/DEC/2022
     Route: 041
     Dates: start: 20230315, end: 20230315
  2. ATEZOLIZUMAB [Suspect]
     Active Substance: ATEZOLIZUMAB
     Route: 041
     Dates: start: 20230315, end: 20230315
  3. ETOPOSIDE [Concomitant]
     Active Substance: ETOPOSIDE
     Indication: Small cell lung cancer metastatic
     Dosage: 20/JUL/2022, 16/AUG/2022, 16/SEP/2022, 14/OCT/2022, 18/NOV/2022, 15/DEC/2022
  4. CARBOPLATIN [Concomitant]
     Active Substance: CARBOPLATIN
     Indication: Small cell lung cancer metastatic
     Dosage: 20/JUL/2022, 16/AUG/2022, 16/SEP/2022, 14/OCT/2022, 18/NOV/2022, 15/DEC/2022
  5. TEMOZOLOMIDE [Concomitant]
     Active Substance: TEMOZOLOMIDE
     Indication: Small cell lung cancer metastatic
     Dates: start: 20230315

REACTIONS (1)
  - Interstitial lung disease [Recovering/Resolving]

NARRATIVE: CASE EVENT DATE: 20230409
